FAERS Safety Report 20229627 (Version 14)
Quarter: 2022Q4

REPORT INFORMATION
  Report Type: Spontaneous
  Country: US (occurrence: US)
  Receive Date: 20211226
  Receipt Date: 20221216
  Transmission Date: 20230113
  Serious: Yes (Other)
  Sender: FDA-Public Use
  Company Number: US-SA-SAC20211224000320

PATIENT
  Age: 74 Year
  Sex: Female

DRUGS (2)
  1. DUPIXENT [Suspect]
     Active Substance: DUPILUMAB
     Indication: Dermatitis atopic
     Dosage: 600 MG, 1X
     Route: 058
     Dates: start: 202112, end: 202112
  2. DUPIXENT [Suspect]
     Active Substance: DUPILUMAB
     Dosage: 300 MG, QOW
     Route: 058
     Dates: start: 202112

REACTIONS (26)
  - Systemic lupus erythematosus [Not Recovered/Not Resolved]
  - Constipation [Unknown]
  - Abdominal distension [Unknown]
  - Alopecia [Unknown]
  - Eye disorder [Unknown]
  - Weight increased [Not Recovered/Not Resolved]
  - Tinnitus [Not Recovered/Not Resolved]
  - Diarrhoea [Not Recovered/Not Resolved]
  - Fluid retention [Not Recovered/Not Resolved]
  - Nausea [Unknown]
  - Pain [Unknown]
  - Faeces pale [Unknown]
  - Headache [Unknown]
  - Muscular weakness [Unknown]
  - Hypertension [Unknown]
  - Toothache [Unknown]
  - Ocular hyperaemia [Not Recovered/Not Resolved]
  - Dizziness [Not Recovered/Not Resolved]
  - Pruritus [Unknown]
  - Insomnia [Not Recovered/Not Resolved]
  - Eye inflammation [Unknown]
  - Eye pruritus [Unknown]
  - Arthralgia [Not Recovered/Not Resolved]
  - Eye irritation [Unknown]
  - Dry eye [Unknown]
  - Adverse drug reaction [Unknown]

NARRATIVE: CASE EVENT DATE: 20211201
